FAERS Safety Report 16874588 (Version 1)
Quarter: 2019Q4

REPORT INFORMATION
  Report Type: Report from Study
  Country: BR (occurrence: BR)
  Receive Date: 20191001
  Receipt Date: 20191001
  Transmission Date: 20200122
  Serious: Yes (Other)
  Sender: FDA-Public Use
  Company Number: BR-TAKEDA-2019TUS010140

PATIENT
  Sex: Male

DRUGS (1)
  1. VEDOLIZUMAB [Suspect]
     Active Substance: VEDOLIZUMAB
     Indication: CROHN^S DISEASE
     Dosage: UNK
     Route: 042
     Dates: start: 20170404

REACTIONS (5)
  - Osteoporosis [Unknown]
  - Intestinal stenosis [Unknown]
  - Nephrolithiasis [Recovered/Resolved]
  - Blood glucose abnormal [Recovered/Resolved]
  - Glycosylated haemoglobin increased [Recovered/Resolved]

NARRATIVE: CASE EVENT DATE: 2017
